FAERS Safety Report 20778213 (Version 1)
Quarter: 2022Q2

REPORT INFORMATION
  Report Type: Spontaneous
  Country: US (occurrence: None)
  Receive Date: 20220502
  Receipt Date: 20220502
  Transmission Date: 20220721
  Serious: Yes (Hospitalization)
  Sender: FDA-Public Use
  Company Number: None

PATIENT
  Age: 41 Year
  Sex: Female
  Weight: 109 kg

DRUGS (2)
  1. EVUSHELD [Suspect]
     Active Substance: CILGAVIMAB\TIXAGEVIMAB
     Indication: Immune thrombocytopenia
     Dosage: FREQUENCY : ONCE;?
     Route: 040
     Dates: start: 20220428, end: 20220428
  2. EVUSHELD [Suspect]
     Active Substance: CILGAVIMAB\TIXAGEVIMAB
     Indication: Evans syndrome

REACTIONS (2)
  - Platelet count decreased [None]
  - Autoimmune haemolytic anaemia [None]

NARRATIVE: CASE EVENT DATE: 20220501
